FAERS Safety Report 22384799 (Version 1)
Quarter: 2023Q2

REPORT INFORMATION
  Report Type: Spontaneous
  Country: US (occurrence: None)
  Receive Date: 20230528
  Receipt Date: 20230528
  Transmission Date: 20230721
  Serious: Yes (Hospitalization)
  Sender: FDA-Public Use
  Company Number: None

PATIENT
  Age: 72 Year
  Sex: Female
  Weight: 85.5 kg

DRUGS (8)
  1. YESCARTA [Suspect]
     Active Substance: AXICABTAGENE CILOLEUCEL
     Indication: Diffuse large B-cell lymphoma
     Dosage: OTHER FREQUENCY : ONCE;?
     Route: 041
     Dates: start: 20230414, end: 20230414
  2. ACTEMRA [Concomitant]
     Active Substance: TOCILIZUMAB
  3. dexAMETHasone (Decadron) injection [Concomitant]
  4. anakinra (Kineret) [Concomitant]
  5. acyclovir (Zovirax) [Concomitant]
  6. levETIRAcetam (Keppra [Concomitant]
  7. cefepime (Maxipime [Concomitant]
  8. piperacillin-tazobactam (Zosyn [Concomitant]

REACTIONS (2)
  - Cytokine release syndrome [None]
  - Immune effector cell-associated neurotoxicity syndrome [None]

NARRATIVE: CASE EVENT DATE: 20230414
